FAERS Safety Report 6000569-X (Version None)
Quarter: 2008Q4

REPORT INFORMATION
  Report Type: 
  Country: None (occurrence: None)
  Receive Date: 20081212
  Receipt Date: 20080623
  Transmission Date: 20090506
  Serious: Yes (Other)
  Sender: FDA-Public Use
  Company Number: 08-001014

PATIENT
  Sex: Female

DRUGS (1)
  1. FEMHRT [Suspect]
     Indication: MENOPAUSAL SYMPTOMS
     Dosage: 1MG/5MCG, QD, ORAL
     Route: 048
     Dates: start: 20080622

REACTIONS (5)
  - BLOOD GLUCOSE INCREASED [None]
  - HEADACHE [None]
  - HEART RATE INCREASED [None]
  - HOT FLUSH [None]
  - HYPERTENSION [None]
